FAERS Safety Report 10735786 (Version 2)
Quarter: 2015Q4

REPORT INFORMATION
  Report Type: Spontaneous
  Country: US (occurrence: US)
  Receive Date: 20150126
  Receipt Date: 20151026
  Transmission Date: 20160304
  Serious: No
  Sender: FDA-Public Use
  Company Number: US-ASTRAZENECA-2015SE04543

PATIENT
  Sex: Male

DRUGS (4)
  1. TRICOR [Concomitant]
     Active Substance: FENOFIBRATE
     Indication: BLOOD TRIGLYCERIDES
  2. ZOCOR [Concomitant]
     Active Substance: SIMVASTATIN
     Indication: BLOOD TRIGLYCERIDES
  3. DALIRESP [Suspect]
     Active Substance: ROFLUMILAST
     Route: 048
  4. SYMBICORT [Suspect]
     Active Substance: BUDESONIDE\FORMOTEROL FUMARATE DIHYDRATE
     Route: 055
     Dates: start: 201412

REACTIONS (7)
  - Oropharyngeal pain [Unknown]
  - Ear infection [Unknown]
  - Nasopharyngitis [Unknown]
  - Condition aggravated [Unknown]
  - Inflammation [Unknown]
  - Productive cough [Unknown]
  - Chronic respiratory disease [Unknown]
